FAERS Safety Report 7103252-2 (Version None)
Quarter: 2010Q4

REPORT INFORMATION
  Report Type: 
  Country: None (occurrence: None)
  Receive Date: 20101115
  Receipt Date: 20101101
  Transmission Date: 20110411
  Serious: Yes (Hospitalization, Disabling, Other)
  Sender: FDA-Public Use
  Company Number: JP-BAYER-JP-2006-011055

PATIENT
  Age: 56 Year
  Sex: Female
  Weight: 49 kg

DRUGS (12)
  1. BETAFERON [Suspect]
     Indication: RELAPSING-REMITTING MULTIPLE SCLEROSIS
     Dosage: UNIT DOSE: 8 MIU
     Route: 058
     Dates: start: 20060316, end: 20060318
  2. BETAFERON [Suspect]
     Dosage: UNIT DOSE: 4 MIU
     Route: 058
     Dates: start: 20060322, end: 20060402
  3. BETAFERON [Suspect]
     Dosage: UNIT DOSE: 8 MIU
     Route: 058
     Dates: start: 20060403, end: 20060503
  4. ALFAROL [Concomitant]
     Indication: OSTEOPOROSIS PROPHYLAXIS
     Dosage: UNIT DOSE: 0.5 MG
     Route: 048
  5. GASTER D [Concomitant]
     Indication: PROPHYLAXIS AGAINST GASTROINTESTINAL ULCER
     Dosage: UNIT DOSE: 20 MG
     Route: 048
  6. CINAL [Concomitant]
     Indication: VITAMIN SUPPLEMENTATION
     Dosage: UNIT DOSE: 1 G
     Route: 048
  7. PREDNISOLONE [Concomitant]
     Indication: RELAPSING-REMITTING MULTIPLE SCLEROSIS
     Dosage: UNIT DOSE: 5 MG
     Route: 048
  8. BONALON [Concomitant]
     Indication: OSTEOPOROSIS PROPHYLAXIS
     Dosage: UNIT DOSE: 5 MG
     Route: 048
  9. CYANOCOBALAMIN [Concomitant]
     Indication: NEUROPATHY PERIPHERAL
     Dosage: UNIT DOSE: 500 ?G
     Route: 048
  10. LIORESAL [Concomitant]
     Indication: MUSCLE SPASMS
     Dosage: UNIT DOSE: 5 MG
     Route: 048
  11. UBRETID [Concomitant]
     Dosage: UNIT DOSE: 5 MG
     Route: 048
  12. PURSENNID [Concomitant]
     Dosage: UNIT DOSE: 12 MG
     Route: 048

REACTIONS (4)
  - MYELITIS TRANSVERSE [None]
  - NEUROMYELITIS OPTICA [None]
  - PARAPARESIS [None]
  - RASH [None]
